FAERS Safety Report 10031435 (Version 1)
Quarter: 2014Q1

REPORT INFORMATION
  Report Type: Spontaneous
  Country: DE (occurrence: DE)
  Receive Date: 20140324
  Receipt Date: 20140324
  Transmission Date: 20141002
  Serious: Yes (Congenital Anomaly, Other)
  Sender: FDA-Public Use
  Company Number: DE-RANBAXY-2014RR-79143

PATIENT
  Age: 1 Day
  Sex: Male
  Weight: 4.25 kg

DRUGS (5)
  1. SERTRALINE [Suspect]
     Indication: ANXIETY DISORDER
     Dosage: 125 MG, DAILY, 0-38.3 GW
     Route: 064
     Dates: start: 20120120, end: 20121015
  2. OPIPRAMOL [Suspect]
     Indication: DEPRESSION
     Dosage: 50 MG, QD, 0-7 GW
     Route: 064
     Dates: start: 20120120
  3. ZOPICLONE [Suspect]
     Indication: SLEEP DISORDER
     Dosage: 7.5 MG, QD, ON DEMAND, 0-7 GW
     Route: 064
     Dates: start: 20120120
  4. CENTRUM MATERNA [Concomitant]
     Indication: PROPHYLAXIS OF NEURAL TUBE DEFECT
     Dosage: 0.4 MG, QD, 6-38.3 GW
     Route: 064
     Dates: start: 20120302, end: 20121015
  5. NASENTROPFEN K-RATIOPHARM [Concomitant]
     Indication: SUBSTANCE ABUSER
     Dosage: UNK, 0-38.3 FW
     Route: 064
     Dates: start: 20120120, end: 20121015

REACTIONS (2)
  - Neonatal respiratory distress syndrome [Recovered/Resolved]
  - Kidney duplex [Not Recovered/Not Resolved]
